FAERS Safety Report 6366466-5 (Version None)
Quarter: 2009Q3

REPORT INFORMATION
  Report Type: 
  Country: None (occurrence: None)
  Receive Date: 20090921
  Receipt Date: 20090917
  Transmission Date: 20100115
  Serious: Yes (Life-Threatening, Hospitalization)
  Sender: FDA-Public Use
  Company Number: US-ELI_LILLY_AND_COMPANY-US200908006191

PATIENT
  Sex: Female

DRUGS (24)
  1. HUMATROPE [Suspect]
     Dosage: UNK, UNKNOWN
  2. ALBUTEROL [Concomitant]
     Dosage: UNK, UNKNOWN
  3. BACLOFEN [Concomitant]
     Dosage: UNK, UNKNOWN
  4. LEVOCARNITINE [Concomitant]
     Dosage: UNK, UNKNOWN
  5. CEFEPIME [Concomitant]
     Dosage: UNK, UNKNOWN
  6. COLACE [Concomitant]
     Dosage: UNK, UNKNOWN
  7. HYDROCORTISONE [Concomitant]
     Dosage: UNK, UNKNOWN
  8. CYMBALTA [Concomitant]
     Dosage: UNK, UNKNOWN
  9. FAMOTIDINE [Concomitant]
     Dosage: UNK, UNKNOWN
  10. FENTANYL [Concomitant]
     Dosage: UNK, UNKNOWN
  11. LASIX [Concomitant]
     Dosage: UNK, UNKNOWN
  12. IPRATROPIUM [Concomitant]
     Dosage: UNK, UNKNOWN
  13. LACTULOSE [Concomitant]
     Dosage: UNK, UNKNOWN
  14. LEVOTHYROXINE SODIUM [Concomitant]
     Dosage: UNK, UNKNOWN
  15. LOVENOX [Concomitant]
     Dosage: UNK, UNKNOWN
  16. METOPROLOL TARTRATE [Concomitant]
     Dosage: UNK, UNKNOWN
  17. INSULIN [Concomitant]
     Dosage: UNK, UNKNOWN
  18. PROVIGIL [Concomitant]
     Dosage: UNK, UNKNOWN
  19. BACTRIM [Concomitant]
     Dosage: UNK, UNKNOWN
  20. TIGECYCLINE [Concomitant]
     Dosage: UNK, UNKNOWN
  21. LABETALOL HCL [Concomitant]
     Dosage: UNK, UNKNOWN
  22. HYDRALAZINE HCL [Concomitant]
     Dosage: UNK, UNKNOWN
  23. LORAZEPAM [Concomitant]
     Dosage: UNK, UNKNOWN
  24. MULTI-VITAMIN [Concomitant]
     Dosage: UNK, UNKNOWN

REACTIONS (5)
  - EPILEPSY [None]
  - RENAL FAILURE ACUTE [None]
  - RENAL FAILURE CHRONIC [None]
  - RESPIRATORY FAILURE [None]
  - STAPHYLOCOCCAL INFECTION [None]
